FAERS Safety Report 19220470 (Version 1)
Quarter: 2021Q2

REPORT INFORMATION
  Report Type: Spontaneous
  Country: US (occurrence: US)
  Receive Date: 20210505
  Receipt Date: 20210505
  Transmission Date: 20210717
  Serious: Yes (Hospitalization, Other)
  Sender: FDA-Public Use
  Company Number: US-B.I. PHARMACEUTICALS,INC./RIDGEFIELD-2021-BI-100535

PATIENT
  Age: 67 Year
  Sex: Female

DRUGS (1)
  1. STIOLTO RESPIMAT [Suspect]
     Active Substance: OLODATEROL HYDROCHLORIDE\TIOTROPIUM BROMIDE MONOHYDRATE
     Indication: CHRONIC OBSTRUCTIVE PULMONARY DISEASE
     Dosage: 2 INHALATIONS QD
     Route: 055
     Dates: start: 2016

REACTIONS (6)
  - Severe acute respiratory syndrome [Recovered/Resolved]
  - Diverticulum [Not Recovered/Not Resolved]
  - Vaginal prolapse [Recovered/Resolved]
  - Abdominal hernia [Not Recovered/Not Resolved]
  - Abdominal mass [Recovered/Resolved]
  - Vaginal haemorrhage [Recovered/Resolved]

NARRATIVE: CASE EVENT DATE: 2019
